FAERS Safety Report 9821054 (Version 4)
Quarter: 2014Q2

REPORT INFORMATION
  Report Type: Report from Study
  Country: FR (occurrence: FR)
  Receive Date: 20140116
  Receipt Date: 20140613
  Transmission Date: 20141212
  Serious: Yes (Other)
  Sender: FDA-Public Use
  Company Number: FR-JNJFOC-20140104941

PATIENT
  Age: 17 Year
  Sex: Male
  Weight: 79.6 kg

DRUGS (3)
  1. REMICADE [Suspect]
     Indication: CROHN^S DISEASE
     Route: 042
  2. REMICADE [Suspect]
     Indication: CROHN^S DISEASE
     Route: 042
     Dates: start: 20090622, end: 20140107
  3. IMUREL [Concomitant]
     Route: 065
     Dates: end: 20140124

REACTIONS (1)
  - Crohn^s disease [Recovered/Resolved]
